FAERS Safety Report 19959091 (Version 26)
Quarter: 2023Q1

REPORT INFORMATION
  Report Type: Report from Study
  Country: GB (occurrence: None)
  Receive Date: 20211015
  Receipt Date: 20230112
  Transmission Date: 20230418
  Serious: Yes (Hospitalization)
  Sender: FDA-Public Use
  Company Number: GB-EISAI MEDICAL RESEARCH-EC-2021-101339

PATIENT
  Age: 69 Year
  Sex: Male
  Weight: 57 kg

DRUGS (19)
  1. LENVATINIB [Suspect]
     Active Substance: LENVATINIB
     Indication: Squamous cell carcinoma of head and neck
     Route: 048
     Dates: start: 20210709, end: 20210910
  2. PEMBROLIZUMAB [Suspect]
     Active Substance: PEMBROLIZUMAB
     Indication: Squamous cell carcinoma of head and neck
     Route: 041
     Dates: start: 20210709, end: 20210820
  3. PEMBROLIZUMAB [Suspect]
     Active Substance: PEMBROLIZUMAB
     Route: 041
     Dates: start: 20210917, end: 20210917
  4. BENZYDAMINE HYDROCHLORIDE [Concomitant]
     Active Substance: BENZYDAMINE HYDROCHLORIDE
     Dates: start: 20190409
  5. MORPHINE SULFATE [Concomitant]
     Active Substance: MORPHINE SULFATE
     Dates: start: 20190409
  6. DERMOL [Concomitant]
     Active Substance: BENZALKONIUM CHLORIDE\CHLORHEXIDINE HYDROCHLORIDE\ISOPROPYL MYRISTATE\PARAFFIN
     Dates: start: 20190510
  7. CLOBETASONE BUTYRATE [Concomitant]
     Active Substance: CLOBETASONE BUTYRATE
     Dates: start: 20190510
  8. CALCIUM\CARBOXYMETHYLCELLULOSE\DEVICE\MAGNESIUM\POTASSIUM\SODIUM CL\SO [Concomitant]
     Active Substance: CALCIUM\CARBOXYMETHYLCELLULOSE\DEVICE\MAGNESIUM\POTASSIUM\SODIUM CL\SORBITOL
     Dates: start: 20201012
  9. DOXAZOSIN [Concomitant]
     Active Substance: DOXAZOSIN MESYLATE
     Dates: start: 20201126
  10. MOVICOL [Concomitant]
     Active Substance: POLYETHYLENE GLYCOL 3350\POTASSIUM CHLORIDE\SODIUM BICARBONATE\SODIUM CHLORIDE
     Dates: start: 20210212
  11. CARBOCYSTEINE [Concomitant]
     Active Substance: CARBOCYSTEINE
     Dates: start: 202103
  12. ORIGINAL ANDREWS SALTS [Concomitant]
     Dates: start: 202106
  13. ACETAMINOPHEN [Concomitant]
     Active Substance: ACETAMINOPHEN
     Dates: start: 202101
  14. CARBOHYDRATES\FATTY ACIDS\MINERALS\PROTEIN\VITAMINS [Concomitant]
     Active Substance: CARBOHYDRATES\FATTY ACIDS\MINERALS\PROTEIN\VITAMINS
     Dates: start: 20210910
  15. FORTIJUICE [Concomitant]
     Dates: start: 20200108
  16. LEVOTHYROXINE SODIUM [Concomitant]
     Active Substance: LEVOTHYROXINE SODIUM
     Dates: start: 20210917, end: 20211022
  17. CYCLIZINE [Concomitant]
     Active Substance: CYCLIZINE
     Dates: start: 20210922, end: 20211022
  18. CETRABEN [Concomitant]
     Dates: start: 20190510
  19. DEVICE\XYLITOL [Concomitant]
     Active Substance: DEVICE\XYLITOL
     Dates: start: 20201012

REACTIONS (2)
  - Pneumonia [Recovered/Resolved]
  - Hypercalcaemia [Not Recovered/Not Resolved]

NARRATIVE: CASE EVENT DATE: 20211008
